FAERS Safety Report 8521089 (Version 2)
Quarter: 2013Q1

REPORT INFORMATION
  Report Type: Spontaneous
  Country: US (occurrence: None)
  Receive Date: 20120411
  Receipt Date: 20130305
  Transmission Date: 20140127
  Serious: Yes (Hospitalization)
  Sender: FDA-Public Use
  Company Number: SP05648

PATIENT
  Sex: Male
  Weight: 87.09 kg

DRUGS (1)
  1. XIFAXAN [Suspect]
     Dosage: ORAL
     Route: 048

REACTIONS (4)
  - OEDEMA PERIPHERAL [None]
  - PULMONARY OEDEMA [None]
  - PNEUMONIA [None]
  - FATIGUE [None]
